FAERS Safety Report 21450523 (Version 1)
Quarter: 2022Q4

REPORT INFORMATION
  Report Type: Spontaneous
  Country: PL (occurrence: PL)
  Receive Date: 20221013
  Receipt Date: 20221013
  Transmission Date: 20230113
  Serious: Yes (Hospitalization)
  Sender: FDA-Public Use
  Company Number: PL-PFIZER INC-PV202200033456

PATIENT
  Age: 42 Year
  Sex: Male

DRUGS (15)
  1. SERTRALINE [Interacting]
     Active Substance: SERTRALINE HYDROCHLORIDE
     Indication: Depression
     Dosage: UNK
     Route: 065
  2. ACETAMINOPHEN\TRAMADOL [Interacting]
     Active Substance: ACETAMINOPHEN\TRAMADOL
     Indication: Myalgia
     Dosage: 650 MG/75 MG
     Route: 048
  3. ACETAMINOPHEN\TRAMADOL [Interacting]
     Active Substance: ACETAMINOPHEN\TRAMADOL
     Indication: Abdominal pain upper
  4. BUPROPION [Interacting]
     Active Substance: BUPROPION
     Indication: Depression
     Dosage: UNK
     Route: 048
  5. CLOPIDOGREL [Concomitant]
     Active Substance: CLOPIDOGREL BISULFATE
     Indication: Product used for unknown indication
     Dosage: 75 MG/DAY
     Route: 065
  6. CLOPIDOGREL [Concomitant]
     Active Substance: CLOPIDOGREL BISULFATE
     Indication: Antiplatelet therapy
  7. ASPIRIN [Concomitant]
     Active Substance: ASPIRIN
     Indication: Product used for unknown indication
     Dosage: 150 MG/D
     Route: 048
  8. ASPIRIN [Concomitant]
     Active Substance: ASPIRIN
     Indication: Antiplatelet therapy
  9. NEBIVOLOL [Concomitant]
     Active Substance: NEBIVOLOL
     Indication: Product used for unknown indication
     Dosage: 5 MG/DAY
     Route: 048
  10. ZOFENOPRIL [Concomitant]
     Active Substance: ZOFENOPRIL
     Indication: Product used for unknown indication
     Dosage: 7.5 MG/DAY
     Route: 048
  11. OMEPRAZOLE [Concomitant]
     Active Substance: OMEPRAZOLE
     Indication: Prophylaxis against gastrointestinal ulcer
     Dosage: 40 MG/DAY
     Route: 065
  12. OMEPRAZOLE [Concomitant]
     Active Substance: OMEPRAZOLE
     Dosage: UNK
     Route: 048
  13. OMEPRAZOLE [Concomitant]
     Active Substance: OMEPRAZOLE
     Dosage: UNK
     Route: 048
  14. MEMANTINE [Concomitant]
     Active Substance: MEMANTINE
     Indication: Memory impairment
     Route: 048
  15. ITRACONAZOLE [Concomitant]
     Active Substance: ITRACONAZOLE
     Indication: Onychomycosis
     Dosage: 200 MILLIGRAM, QD
     Route: 048

REACTIONS (4)
  - Condition aggravated [Recovered/Resolved]
  - Drug interaction [Recovered/Resolved]
  - Nausea [Recovered/Resolved]
  - Drug ineffective [Unknown]
